FAERS Safety Report 5484089-7 (Version None)
Quarter: 2007Q4

REPORT INFORMATION
  Report Type: 
  Country: None (occurrence: None)
  Receive Date: 20071009
  Receipt Date: 20071009
  Transmission Date: 20080405
  Serious: Yes (Other)
  Sender: FDA-Public Use
  Company Number: None

PATIENT
  Age: 72 Year
  Sex: Female
  Weight: 79.3795 kg

DRUGS (2)
  1. LYRICA [Suspect]
     Indication: BACK PAIN
     Dosage: 2 TABS IN EVENING MOUTH
     Route: 048
     Dates: start: 20070719, end: 20070723
  2. LYRICA [Suspect]
     Indication: PAIN IN EXTREMITY
     Dosage: 2 TABS IN EVENING MOUTH
     Route: 048
     Dates: start: 20070719, end: 20070723

REACTIONS (3)
  - DRUG INEFFECTIVE [None]
  - PRURITUS [None]
  - SKIN ULCER [None]
